FAERS Safety Report 9482182 (Version 1)
Quarter: 2013Q3

REPORT INFORMATION
  Report Type: Spontaneous
  Country: BR (occurrence: BR)
  Receive Date: 20130828
  Receipt Date: 20130828
  Transmission Date: 20140515
  Serious: Yes (Other)
  Sender: FDA-Public Use
  Company Number: BR-JNJFOC-20130812722

PATIENT
  Age: 59 Year
  Sex: Female
  Weight: 79 kg

DRUGS (3)
  1. REMICADE [Suspect]
     Indication: ARTHRITIS
     Route: 042
     Dates: start: 20130819, end: 20130819
  2. REMICADE [Suspect]
     Indication: ARTHRITIS
     Route: 042
     Dates: start: 200912
  3. PREDNISONE [Concomitant]
     Route: 065

REACTIONS (6)
  - Hepatic steatosis [Unknown]
  - Blood cholesterol abnormal [Unknown]
  - Blood glucose fluctuation [Unknown]
  - Laboratory test abnormal [Unknown]
  - Blood triglycerides abnormal [Unknown]
  - Drug ineffective [Unknown]
